FAERS Safety Report 8152196-6 (Version None)
Quarter: 2012Q1

REPORT INFORMATION
  Report Type: 
  Country: None (occurrence: None)
  Receive Date: 20120214
  Receipt Date: 20120131
  Transmission Date: 20120608
  Serious: Yes (Hospitalization)
  Sender: FDA-Public Use
  Company Number: EU-2011-10152

PATIENT
  Sex: Male
  Weight: 92 kg

DRUGS (13)
  1. SAMSCA [Suspect]
     Indication: INAPPROPRIATE ANTIDIURETIC HORMONE SECRETION
     Dosage: SEE IMAGE
     Route: 048
     Dates: start: 20110714, end: 20110812
  2. SAMSCA [Suspect]
     Indication: INAPPROPRIATE ANTIDIURETIC HORMONE SECRETION
     Dosage: SEE IMAGE
     Route: 048
     Dates: start: 20110813, end: 20110816
  3. SAMSCA [Suspect]
     Indication: INAPPROPRIATE ANTIDIURETIC HORMONE SECRETION
     Dosage: SEE IMAGE
     Route: 048
     Dates: start: 20110817, end: 20110826
  4. SAMSCA [Suspect]
     Indication: INAPPROPRIATE ANTIDIURETIC HORMONE SECRETION
     Dosage: SEE IMAGE
     Route: 048
     Dates: start: 20110603, end: 20110624
  5. SAMSCA [Suspect]
     Indication: INAPPROPRIATE ANTIDIURETIC HORMONE SECRETION
     Dosage: SEE IMAGE
     Route: 048
     Dates: start: 20110624, end: 20110711
  6. DEXAMETHASONE [Concomitant]
  7. ACETAMINOPHEN [Concomitant]
  8. CYCLIZIDE (CYCLIZIDE) [Concomitant]
  9. ENSURE (NUTRIENTS NOS) [Concomitant]
  10. DIHYDROCODEINE BITARTRATE INJ [Concomitant]
  11. METOCHLOPRAMIDE (METOCLOPRAMIDE HYDROCHLORIDE) [Concomitant]
  12. ASPIRIN [Concomitant]
  13. BISOPROLOL(BISOPROLO) [Concomitant]

REACTIONS (4)
  - VOMITING [None]
  - HYPONATRAEMIA [None]
  - DRUG INEFFECTIVE [None]
  - LETHARGY [None]
